FAERS Safety Report 4530535-2 (Version None)
Quarter: 2004Q4

REPORT INFORMATION
  Report Type: 
  Country: None (occurrence: None)
  Receive Date: 20041216
  Receipt Date: 20041028
  Transmission Date: 20050328
  Serious: No
  Sender: FDA-Public Use
  Company Number: 9205

PATIENT
  Age: 62 Year
  Sex: Female

DRUGS (4)
  1. FLUOROURACIL [Suspect]
     Indication: RECTAL CANCER
     Dosage: IV
     Route: 042
     Dates: end: 20031101
  2. FLUOROURACIL [Suspect]
     Indication: RECTAL CANCER
     Dosage: IV
     Route: 042
     Dates: start: 20040301
  3. CALCIUM LEVOFOLINATE [Suspect]
     Indication: RECTAL CANCER
     Dosage: IV
     Route: 042
     Dates: end: 20031101
  4. CALCIUM LEVOFOLINATE [Suspect]
     Indication: RECTAL CANCER
     Dosage: IV
     Route: 042
     Dates: start: 20040301, end: 20040501

REACTIONS (6)
  - CARBOHYDRATE ANTIGEN 19-9 INCREASED [None]
  - CARCINOEMBRYONIC ANTIGEN INCREASED [None]
  - DISEASE RECURRENCE [None]
  - HYDRONEPHROSIS [None]
  - LYMPHADENOPATHY [None]
  - PULMONARY TUBERCULOSIS [None]
